FAERS Safety Report 4972087-9 (Version None)
Quarter: 2006Q2

REPORT INFORMATION
  Report Type: 
  Country: None (occurrence: None)
  Receive Date: 20060412
  Receipt Date: 20060412
  Transmission Date: 20061013
  Serious: Yes (Hospitalization)
  Sender: FDA-Public Use
  Company Number: None

PATIENT
  Sex: Male
  Weight: 93.64 kg

DRUGS (1)
  1. QUETIAPINE FUMARATE [Suspect]
     Indication: SLEEP DISORDER
     Dosage: 25 MG HS PO
     Route: 048
     Dates: start: 20060224, end: 20060320

REACTIONS (2)
  - AKATHISIA [None]
  - ILL-DEFINED DISORDER [None]
